FAERS Safety Report 4469171-5 (Version None)
Quarter: 2004Q4

REPORT INFORMATION
  Report Type: 
  Country: None (occurrence: None)
  Receive Date: 20041005
  Receipt Date: 20040927
  Transmission Date: 20050328
  Serious: Yes (Hospitalization)
  Sender: FDA-Public Use
  Company Number: K200401467

PATIENT
  Age: 78 Year
  Sex: Female
  Weight: 20.8655 kg

DRUGS (8)
  1. ALTACE [Suspect]
     Indication: ANGINA PECTORIS
     Dosage: 2.5 MG, QD, ORAL
     Route: 048
  2. GELUPRANE (PARACETAMOL) CAPSULE, 500MG [Suspect]
     Dosage: 500 MG, QD, ORAL
     Route: 048
     Dates: start: 20030101
  3. KARDEGIC (ACETYLSALICYLATE LYSINE) TABLET, 75MG [Suspect]
     Indication: ANGINA PECTORIS
     Dosage: 75 MG, QD, ORAL
     Route: 048
  4. LORAZEPAM [Suspect]
     Dosage: 1 MG, QD, ORAL
     Route: 048
  5. LANSOPRAZOLE [Suspect]
     Dosage: ORAL
     Route: 048
  6. MONO-TILDIEM (DILTIAZEM HYDROCHLORIDE) CAPSULE, 300 MG [Suspect]
     Dosage: 300 MG, QD, ORAL
     Route: 048
  7. ISOSORBIDE DINITRATE [Suspect]
  8. MODURETIC ^DU PONT^ [Concomitant]

REACTIONS (7)
  - DRUG INEFFECTIVE [None]
  - HYPERKERATOSIS [None]
  - LICHEN PLANUS [None]
  - MOUTH ULCERATION [None]
  - ONYCHOLYSIS [None]
  - RASH ERYTHEMATOUS [None]
  - SKIN FISSURES [None]
